FAERS Safety Report 18288521 (Version 3)
Quarter: 2021Q1

REPORT INFORMATION
  Report Type: Report from Study
  Country: None (occurrence: US)
  Receive Date: 20200921
  Receipt Date: 20210123
  Transmission Date: 20210419
  Serious: Yes (Hospitalization)
  Sender: FDA-Public Use
  Company Number: US-INSMED, INC.-US-INS-20-01755

PATIENT
  Age: 61 Year
  Sex: Male

DRUGS (2)
  1. ARIKAYCE [Suspect]
     Active Substance: AMIKACIN
     Indication: MYCOBACTERIAL INFECTION
     Route: 055
     Dates: start: 202004, end: 2020
  2. ARIKAYCE [Suspect]
     Active Substance: AMIKACIN
     Route: 055
     Dates: start: 2020

REACTIONS (9)
  - Ear discomfort [Unknown]
  - Bronchoscopy [Unknown]
  - Malaise [Unknown]
  - Myocardial infarction [Unknown]
  - Intensive care [Unknown]
  - Dyspnoea [Unknown]
  - Hospitalisation [Unknown]
  - Pneumonia [Unknown]
  - Nausea [Unknown]

NARRATIVE: CASE EVENT DATE: 2020
